FAERS Safety Report 13444834 (Version 3)
Quarter: 2017Q3

REPORT INFORMATION
  Report Type: Spontaneous
  Country: US (occurrence: US)
  Receive Date: 20170414
  Receipt Date: 20170802
  Transmission Date: 20171127
  Serious: Yes (Other)
  Sender: FDA-Public Use
  Company Number: US-LUNDBECK-DKLU2028438

PATIENT
  Sex: Male

DRUGS (2)
  1. NORTHERA [Suspect]
     Active Substance: DROXIDOPA
     Dosage: TITRATE UP 0.5 PILLS WEEKLY
     Route: 065
  2. NORTHERA [Suspect]
     Active Substance: DROXIDOPA
     Indication: PRODUCT USED FOR UNKNOWN INDICATION
     Dosage: SCHEDULE C AND TITRATING
     Route: 065

REACTIONS (6)
  - Multiple system atrophy [Unknown]
  - Aphasia [Unknown]
  - Orthostatic hypotension [Unknown]
  - Condition aggravated [Unknown]
  - Parkinson^s disease [Unknown]
  - Dysarthria [Unknown]
